FAERS Safety Report 11500454 (Version 1)
Quarter: 2015Q3

REPORT INFORMATION
  Report Type: Spontaneous
  Country: US (occurrence: None)
  Receive Date: 20150910
  Receipt Date: 20150910
  Transmission Date: 20151125
  Serious: No
  Sender: FDA-Public Use
  Company Number: 2014-PEL-000480

PATIENT
  Age: 22 Year
  Sex: Female
  Weight: 49.5 kg

DRUGS (7)
  1. ATRACURIUM [Concomitant]
     Active Substance: ATRACURIUM
  2. THIOPENTAL SODIUM. [Concomitant]
     Active Substance: THIOPENTAL SODIUM
  3. ISOFLURANE, USP (HUMAN) (ISOFLURANE) INJECTION, 100ML [Suspect]
     Active Substance: ISOFLURANE
     Indication: MAINTENANCE OF ANAESTHESIA
     Dosage: UNK, UNKNOWN
  4. MIDAZOLAM [Concomitant]
     Active Substance: MIDAZOLAM\MIDAZOLAM HYDROCHLORIDE
  5. NITROUS OXIDE. [Concomitant]
     Active Substance: NITROUS OXIDE
  6. OXYGEN. [Concomitant]
     Active Substance: OXYGEN
  7. FENTANYL. [Concomitant]
     Active Substance: FENTANYL

REACTIONS (3)
  - Biopsy muscle abnormal [None]
  - Muscle rigidity [None]
  - Hyperthermia malignant [None]
